FAERS Safety Report 9992896 (Version 1)
Quarter: 2014Q1

REPORT INFORMATION
  Report Type: Spontaneous
  Country: DE (occurrence: DE)
  Receive Date: 20140310
  Receipt Date: 20140310
  Transmission Date: 20141002
  Serious: Yes (Congenital Anomaly, Other)
  Sender: FDA-Public Use
  Company Number: DE-ABBVIE-14P-062-1208276-00

PATIENT
  Sex: 0

DRUGS (2)
  1. HUMIRA [Suspect]
     Indication: MATERNAL EXPOSURE TIMING UNSPECIFIED
     Route: 064
  2. BELARA [Suspect]
     Indication: MATERNAL EXPOSURE TIMING UNSPECIFIED
     Route: 064

REACTIONS (6)
  - Umbilical hernia [Not Recovered/Not Resolved]
  - Foetal exposure during pregnancy [Unknown]
  - Haemangioma [Not Recovered/Not Resolved]
  - Cryptorchism [Recovered/Resolved]
  - Respiratory disorder neonatal [Unknown]
  - Premature baby [Unknown]
